FAERS Safety Report 7701994-9 (Version None)
Quarter: 2011Q3

REPORT INFORMATION
  Report Type: 
  Country: None (occurrence: None)
  Receive Date: 20110822
  Receipt Date: 20110816
  Transmission Date: 20111222
  Serious: Yes (Death, Hospitalization, Other)
  Sender: FDA-Public Use
  Company Number: PHEH2011US00555

PATIENT
  Sex: Female

DRUGS (1)
  1. EXJADE [Suspect]
     Dosage: 2000 MG, QDUD
     Route: 048

REACTIONS (19)
  - CARDIOMYOPATHY [None]
  - BRONCHOSPASM [None]
  - HAEMATURIA [None]
  - OEDEMA PERIPHERAL [None]
  - ATRIAL FIBRILLATION [None]
  - RESPIRATORY FAILURE [None]
  - PNEUMONIA HERPES VIRAL [None]
  - WEANING FAILURE [None]
  - INTERNATIONAL NORMALISED RATIO INCREASED [None]
  - MULTI-ORGAN FAILURE [None]
  - HEPATIC FAILURE [None]
  - EJECTION FRACTION DECREASED [None]
  - ORTHOPNOEA [None]
  - DISSEMINATED INTRAVASCULAR COAGULATION [None]
  - PLATELET COUNT DECREASED [None]
  - HEPATITIS C [None]
  - HAEMATOCRIT DECREASED [None]
  - COUGH [None]
  - HEPATIC ENCEPHALOPATHY [None]
